FAERS Safety Report 22093661 (Version 1)
Quarter: 2023Q1

REPORT INFORMATION
  Report Type: Spontaneous
  Country: US (occurrence: None)
  Receive Date: 20230313
  Receipt Date: 20230313
  Transmission Date: 20230417
  Serious: Yes (Other)
  Sender: FDA-Public Use
  Company Number: None

PATIENT
  Age: 53 Year
  Sex: Female
  Weight: 72 kg

DRUGS (1)
  1. XYZAL ALLERGY 24HR [Suspect]
     Active Substance: LEVOCETIRIZINE DIHYDROCHLORIDE
     Indication: Rhinitis
     Dosage: OTHER QUANTITY : 1 TABLET(S);?
     Route: 048
     Dates: start: 20230313, end: 20230313

REACTIONS (6)
  - Drug hypersensitivity [None]
  - Feeling hot [None]
  - Rash erythematous [None]
  - Pruritus [None]
  - Feeling abnormal [None]
  - Sunburn [None]

NARRATIVE: CASE EVENT DATE: 20230313
